FAERS Safety Report 6199370-6 (Version None)
Quarter: 2009Q2

REPORT INFORMATION
  Report Type: 
  Country: None (occurrence: None)
  Receive Date: 20090519
  Receipt Date: 20090504
  Transmission Date: 20091009
  Serious: Yes (Hospitalization)
  Sender: FDA-Public Use
  Company Number: 09-050

PATIENT
  Age: 86 Year
  Sex: Female
  Weight: 52.1637 kg

DRUGS (20)
  1. CEFEPIME [Suspect]
     Indication: OSTEOMYELITIS
     Dosage: 2 GRAMS EVERY 12 HRS, IV
     Route: 042
     Dates: start: 20081001, end: 20081029
  2. CIPRO [Suspect]
     Indication: OSTEOMYELITIS
     Dates: end: 20081007
  3. METHADONE [Concomitant]
  4. POTASSIUM CHLORIDE [Concomitant]
  5. OS-CAL (CALCIUM SUPPLEMENTS) [Concomitant]
  6. MULTI-VITAMIN [Concomitant]
  7. FIBER TABLETS [Concomitant]
  8. ASPIRIN [Concomitant]
  9. PREDNISONE [Concomitant]
  10. LASIX [Concomitant]
  11. ISOSORBIDE [Concomitant]
  12. ATENOLOL [Concomitant]
  13. PROTONIX [Concomitant]
  14. COLACE (DOCUSATE SODIUM) [Concomitant]
  15. PRINIVIL [Concomitant]
  16. LIPITOR [Concomitant]
  17. MIRALAX [Concomitant]
  18. WELLBUTRIN [Concomitant]
  19. TRAVATAN [Concomitant]
  20. CYMBALTA [Concomitant]

REACTIONS (17)
  - AGITATION [None]
  - ANTICONVULSANT DRUG LEVEL ABOVE THERAPEUTIC [None]
  - ANXIETY [None]
  - AORTIC STENOSIS [None]
  - CEREBRAL ATROPHY [None]
  - CONVULSION [None]
  - DEPRESSION [None]
  - DYSKINESIA [None]
  - ENCEPHALOPATHY [None]
  - HALLUCINATION [None]
  - LETHARGY [None]
  - LOSS OF CONSCIOUSNESS [None]
  - MOVEMENT DISORDER [None]
  - OFF LABEL USE [None]
  - SPEECH DISORDER [None]
  - SYNCOPE [None]
  - VENTRICULAR HYPERTROPHY [None]
